FAERS Safety Report 23912791 (Version 2)
Quarter: 2024Q2

REPORT INFORMATION
  Report Type: Spontaneous
  Country: MX (occurrence: AE)
  Receive Date: 20240529
  Receipt Date: 20240531
  Transmission Date: 20240716
  Serious: Yes (Hospitalization, Other)
  Sender: FDA-Public Use
  Company Number: CO-ABBVIE-5777011

PATIENT
  Sex: Female

DRUGS (1)
  1. BOTOX [Suspect]
     Active Substance: ONABOTULINUMTOXINA
     Indication: Facial cosmetic procedure
     Dosage: TIME INTERVAL: AS NECESSARY
     Route: 030
     Dates: start: 20240521, end: 20240521

REACTIONS (8)
  - Hypersensitivity [Recovering/Resolving]
  - Seizure [Recovering/Resolving]
  - Cerebral infarction [Recovering/Resolving]
  - Blood pressure abnormal [Recovering/Resolving]
  - Syncope [Recovering/Resolving]
  - Vision blurred [Recovering/Resolving]
  - Skin wrinkling [Unknown]
  - Dizziness [Recovering/Resolving]

NARRATIVE: CASE EVENT DATE: 20240501
